FAERS Safety Report 20147541 (Version 1)
Quarter: 2021Q4

REPORT INFORMATION
  Report Type: Spontaneous
  Country: US (occurrence: US)
  Receive Date: 20211203
  Receipt Date: 20211203
  Transmission Date: 20220303
  Serious: No
  Sender: FDA-Public Use
  Company Number: US-SA-2016SA082445

PATIENT
  Age: 88 Year
  Sex: Male

DRUGS (1)
  1. LANTUS SOLOSTAR [Suspect]
     Active Substance: INSULIN GLARGINE
     Indication: Type 2 diabetes mellitus
     Dosage: 34 DF,HS
     Route: 065

REACTIONS (3)
  - Blood glucose abnormal [Unknown]
  - Hyperhidrosis [Unknown]
  - Confusional state [Unknown]
